FAERS Safety Report 16740854 (Version 1)
Quarter: 2019Q3

REPORT INFORMATION
  Report Type: Spontaneous
  Country: FR (occurrence: FR)
  Receive Date: 20190826
  Receipt Date: 20190826
  Transmission Date: 20191005
  Serious: Yes (Hospitalization)
  Sender: FDA-Public Use
  Company Number: FR-TEVA-2019-FR-1096636

PATIENT
  Age: 48 Year
  Sex: Male
  Weight: 72.8 kg

DRUGS (9)
  1. AUGMENTIN [Suspect]
     Active Substance: AMOXICILLIN\CLAVULANATE POTASSIUM
     Indication: FEBRILE BONE MARROW APLASIA
     Route: 048
     Dates: start: 20190715, end: 20190717
  2. TRUXIMA [Suspect]
     Active Substance: RITUXIMAB-ABBS
     Indication: B-CELL LYMPHOMA
     Route: 041
     Dates: start: 20190703, end: 20190703
  3. BACTRIM [Suspect]
     Active Substance: SULFAMETHOXAZOLE\TRIMETHOPRIM
     Indication: PROPHYLAXIS
     Route: 048
     Dates: start: 20190704, end: 20190717
  4. OXALIPLATINE [Suspect]
     Active Substance: OXALIPLATIN
     Indication: B-CELL LYMPHOMA
     Route: 041
     Dates: start: 20190703, end: 20190703
  5. OFLOXACINE EVOLUGEN 200 MG, COMPRIME PELLICULE SECABLE [Suspect]
     Active Substance: OFLOXACIN
     Indication: FEBRILE BONE MARROW APLASIA
     Route: 048
     Dates: start: 20190715, end: 20190717
  6. NIVESTIM 30 MU/0,5 ML, SOLUTION INJECTABLE/POUR PERFUSION [Suspect]
     Active Substance: FILGRASTIM
     Indication: NEUTROPENIA
     Route: 058
     Dates: start: 20190708, end: 20190712
  7. ZELITREX 500 MG, COMPRIME ENROBE [Suspect]
     Active Substance: VALACYCLOVIR HYDROCHLORIDE
     Indication: ANTIVIRAL PROPHYLAXIS
     Route: 048
     Dates: start: 20190703, end: 20190717
  8. COVERSYL 2,5 MG, COMPRIME PELLICULE [Suspect]
     Active Substance: PERINDOPRIL ARGININE
     Indication: HYPERTENSION
     Route: 048
     Dates: start: 2013, end: 20190717
  9. ARACYTINE [Suspect]
     Active Substance: CYTARABINE
     Indication: B-CELL LYMPHOMA
     Route: 041
     Dates: start: 20190703, end: 20190704

REACTIONS (1)
  - Generalised erythema [Recovering/Resolving]

NARRATIVE: CASE EVENT DATE: 20190717
